FAERS Safety Report 23956785 (Version 1)
Quarter: 2024Q2

REPORT INFORMATION
  Report Type: Spontaneous
  Country: US (occurrence: US)
  Receive Date: 20240610
  Receipt Date: 20240610
  Transmission Date: 20240716
  Serious: Yes (Hospitalization)
  Sender: FDA-Public Use
  Company Number: US-BRAEBURN-US-BRA-24-000401

PATIENT
  Sex: Male

DRUGS (1)
  1. BRIXADI [Suspect]
     Active Substance: BUPRENORPHINE
     Indication: Product used for unknown indication
     Dosage: 128 MILLIGRAM
     Route: 065
     Dates: start: 202404

REACTIONS (2)
  - Respiratory depression [Recovered/Resolved]
  - Wrong product administered [Unknown]
